FAERS Safety Report 10268294 (Version 1)
Quarter: 2014Q2

REPORT INFORMATION
  Report Type: Spontaneous
  Country: US (occurrence: US)
  Receive Date: 20140630
  Receipt Date: 20140630
  Transmission Date: 20141212
  Serious: Yes (Other)
  Sender: FDA-Public Use
  Company Number: US-BAYER-2014-096023

PATIENT
  Age: 83 Year
  Sex: Female

DRUGS (1)
  1. BAYER EXTRA STRENGTH ASPIRIN [Suspect]
     Dosage: 1 DF, BID
     Route: 048

REACTIONS (2)
  - Asthma [None]
  - Incorrect drug administration duration [None]
